FAERS Safety Report 8114885-9 (Version None)
Quarter: 2012Q1

REPORT INFORMATION
  Report Type: 
  Country: None (occurrence: None)
  Receive Date: 20120201
  Receipt Date: 20120123
  Transmission Date: 20120608
  Serious: Yes (Other)
  Sender: FDA-Public Use
  Company Number: TPA2012A00382

PATIENT
  Age: 77 Year
  Sex: Male
  Weight: 65.318 kg

DRUGS (7)
  1. TAMSULOSIN HCL [Concomitant]
  2. ACTOS [Suspect]
     Indication: TYPE 2 DIABETES MELLITUS
     Dosage: 45 MG, 1 IN 1 D, PER ORAL
     Route: 048
     Dates: start: 20000101, end: 20111219
  3. METOPROLOL SUCCINATE [Concomitant]
  4. LOSARTAN HCT (HYDROCHLOROTHIAZIDE, LOSARTAN POTASSIUM) [Concomitant]
  5. GLIMEPIRIDE [Concomitant]
  6. LANTUS [Concomitant]
  7. AMLODIPINE [Concomitant]

REACTIONS (3)
  - BLADDER TRANSITIONAL CELL CARCINOMA STAGE 0 [None]
  - CYSTITIS HAEMORRHAGIC [None]
  - TRANSITIONAL CELL CARCINOMA [None]
